FAERS Safety Report 23777111 (Version 1)
Quarter: 2024Q2

REPORT INFORMATION
  Report Type: Spontaneous
  Country: US (occurrence: US)
  Receive Date: 20240424
  Receipt Date: 20240424
  Transmission Date: 20240716
  Serious: No
  Sender: FDA-Public Use
  Company Number: US-UNITED THERAPEUTICS-UNT-2024-003959

PATIENT
  Sex: Female

DRUGS (7)
  1. TYVASO [Suspect]
     Active Substance: TREPROSTINIL
     Indication: Pulmonary arterial hypertension
     Dosage: 54 ?G, QID
  2. TYVASO [Suspect]
     Active Substance: TREPROSTINIL
     Dosage: 36-42 ?G, QID
  3. TYVASO [Suspect]
     Active Substance: TREPROSTINIL
     Dosage: UNK
     Dates: start: 202209
  4. TADALAFIL [Concomitant]
     Active Substance: TADALAFIL
     Indication: Product used for unknown indication
     Dosage: UNK
     Route: 065
  5. OFEV [Concomitant]
     Active Substance: NINTEDANIB
     Indication: Interstitial lung disease
     Dosage: 100 MG, Q12H
     Route: 048
     Dates: start: 20210614, end: 202110
  6. OFEV [Concomitant]
     Active Substance: NINTEDANIB
     Indication: Idiopathic pulmonary fibrosis
     Dosage: 150 MG, Q12H
     Route: 048
     Dates: start: 202110
  7. OFEV [Concomitant]
     Active Substance: NINTEDANIB
     Dosage: 100 ?G, Q12H
     Route: 048

REACTIONS (8)
  - Cough [Unknown]
  - Chest pain [Unknown]
  - Fatigue [Unknown]
  - Abdominal pain upper [Unknown]
  - Diarrhoea [Unknown]
  - COVID-19 [Unknown]
  - Abdominal pain [Unknown]
  - Nausea [Unknown]
